FAERS Safety Report 5495626-0 (Version None)
Quarter: 2007Q4

REPORT INFORMATION
  Report Type: 
  Country: None (occurrence: None)
  Receive Date: 20071025
  Receipt Date: 20071015
  Transmission Date: 20080405
  Serious: Yes (Hospitalization)
  Sender: FDA-Public Use
  Company Number: US-JNJFOC-20071004098

PATIENT
  Sex: Female
  Weight: 75 kg

DRUGS (10)
  1. DURAGESIC-100 [Suspect]
     Indication: PAIN
     Dosage: 100UG/HR + 25UG/HR
     Route: 062
  2. PERCOCET [Concomitant]
     Dosage: 5/325 ONE EVERY 6-8 HOURS
     Route: 048
  3. EFFEXOR [Concomitant]
     Route: 048
  4. DARVOCET [Concomitant]
     Dosage: 1-2 EVERY 4 HOURS AS NEEDED
     Route: 048
  5. PHENERGAN HCL [Concomitant]
     Dosage: AS NEEDED
     Route: 048
  6. LYRICA [Concomitant]
     Route: 048
  7. SYNTHROID [Concomitant]
     Route: 048
  8. KLONOPIN [Concomitant]
     Route: 048
  9. ATIVAN [Concomitant]
     Route: 048
  10. PRED FORTE [Concomitant]
     Route: 047

REACTIONS (2)
  - PANCREATITIS ACUTE [None]
  - WRONG TECHNIQUE IN DRUG USAGE PROCESS [None]
